FAERS Safety Report 9689351 (Version 1)
Quarter: 2013Q4

REPORT INFORMATION
  Report Type: Spontaneous
  Country: BG (occurrence: BG)
  Receive Date: 20131114
  Receipt Date: 20131114
  Transmission Date: 20140711
  Serious: Yes (Other)
  Sender: FDA-Public Use
  Company Number: BG-PFIZER INC-2013325946

PATIENT
  Sex: 0

DRUGS (2)
  1. ZOLOFT [Suspect]
     Indication: AGORAPHOBIA
     Dosage: 50 MG, 1X/DAY
     Route: 064
     Dates: start: 2001
  2. ZOLOFT [Suspect]
     Dosage: 25 MG, 1X/DAY
     Route: 064
     Dates: end: 2011

REACTIONS (2)
  - Maternal exposure during pregnancy [Unknown]
  - Premature baby [Unknown]
